FAERS Safety Report 10917392 (Version 1)
Quarter: 2015Q1

REPORT INFORMATION
  Report Type: Spontaneous
  Country: GR (occurrence: GR)
  Receive Date: 20150316
  Receipt Date: 20150316
  Transmission Date: 20150721
  Serious: Yes (Other)
  Sender: FDA-Public Use
  Company Number: GR-JNJFOC-20150308055

PATIENT
  Sex: Male

DRUGS (1)
  1. REMICADE [Suspect]
     Active Substance: INFLIXIMAB
     Indication: RHEUMATOID ARTHRITIS
     Dosage: 100 MG/VIAL
     Route: 042

REACTIONS (5)
  - Hypoxia [Unknown]
  - Bronchospasm [Unknown]
  - Infusion related reaction [Unknown]
  - Dyspnoea [Unknown]
  - Breath sounds abnormal [Unknown]
